FAERS Safety Report 15356826 (Version 2)
Quarter: 2019Q2

REPORT INFORMATION
  Report Type: Spontaneous
  Country: US (occurrence: US)
  Receive Date: 20180906
  Receipt Date: 20190502
  Transmission Date: 20190711
  Serious: Yes (Hospitalization, Other)
  Sender: FDA-Public Use
  Company Number: US-SA-2018SA249683

PATIENT
  Age: 73 Year
  Sex: Female
  Weight: 89.34 kg

DRUGS (3)
  1. COLESEVELAM HYDROCHLORIDE. [Suspect]
     Active Substance: COLESEVELAM HYDROCHLORIDE
     Indication: BLOOD CHOLESTEROL INCREASED
     Dosage: 6 DF, QD
     Route: 048
     Dates: start: 201901
  2. WELCHOL [Suspect]
     Active Substance: COLESEVELAM HYDROCHLORIDE
     Indication: HYPERLIPIDAEMIA
     Dosage: 3750 MG, QD
     Route: 048
     Dates: start: 1998, end: 201901
  3. LEVOTHYROXINE. [Concomitant]
     Active Substance: LEVOTHYROXINE

REACTIONS (7)
  - Hospitalisation [Unknown]
  - Product residue present [Not Recovered/Not Resolved]
  - Therapeutic response unexpected [Unknown]
  - Malabsorption [Not Recovered/Not Resolved]
  - Glaucoma [Unknown]
  - Cataract operation [Unknown]
  - Drug ineffective [Unknown]

NARRATIVE: CASE EVENT DATE: 2010
